FAERS Safety Report 5571788-1 (Version None)
Quarter: 2007Q4

REPORT INFORMATION
  Report Type: 
  Country: None (occurrence: None)
  Receive Date: 20071221
  Receipt Date: 20071218
  Transmission Date: 20080405
  Serious: Yes (Other)
  Sender: FDA-Public Use
  Company Number: B0500213A

PATIENT
  Age: 8 Year
  Sex: Female
  Weight: 27 kg

DRUGS (6)
  1. RELENZA [Suspect]
     Indication: INFLUENZA
     Dosage: 10MG PER DAY
     Route: 055
     Dates: start: 20071213, end: 20071213
  2. COCARL [Concomitant]
     Route: 048
  3. PERIACTIN [Concomitant]
     Route: 048
  4. ASVERIN [Concomitant]
     Route: 048
  5. MUCODYNE [Concomitant]
     Route: 048
  6. UNKNOWN DRUG [Concomitant]
     Dosage: 200MG TWICE PER DAY
     Route: 054

REACTIONS (2)
  - ABNORMAL BEHAVIOUR [None]
  - CONVULSION [None]
